FAERS Safety Report 5567630-5 (Version None)
Quarter: 2007Q4

REPORT INFORMATION
  Report Type: 
  Country: None (occurrence: None)
  Receive Date: 20071214
  Receipt Date: 20071203
  Transmission Date: 20080405
  Serious: Yes (Other)
  Sender: FDA-Public Use
  Company Number: 230923J07USA

PATIENT
  Age: 37 Year
  Sex: Female
  Weight: 92.5338 kg

DRUGS (3)
  1. REBIF [Suspect]
     Indication: MULTIPLE SCLEROSIS
     Dosage: 44 MCG, 3 IN 1 WEEKS, SUBCUTANEOUS
     Route: 058
     Dates: start: 20070411
  2. SYNTHROID (LEBOTHYROXINE SODIUM) [Concomitant]
  3. NEXIUM [Concomitant]

REACTIONS (2)
  - NEOPLASM PROGRESSION [None]
  - PROCEDURAL PAIN [None]
